FAERS Safety Report 13318738 (Version 3)
Quarter: 2018Q2

REPORT INFORMATION
  Report Type: Spontaneous
  Country: US (occurrence: US)
  Receive Date: 20170310
  Receipt Date: 20180405
  Transmission Date: 20180711
  Serious: Yes (Other)
  Sender: FDA-Public Use
  Company Number: US-JNJFOC-20170311066

PATIENT

DRUGS (2)
  1. SIMEPREVIR [Suspect]
     Active Substance: SIMEPREVIR
     Indication: CHRONIC HEPATITIS C
     Dosage: THERAPY DURATION: 12 WEEKS
     Route: 065
  2. SOFOSBUVIR [Suspect]
     Active Substance: SOFOSBUVIR
     Indication: CHRONIC HEPATITIS C
     Dosage: THERAPY DURATION: 12 WEEKS
     Route: 065

REACTIONS (15)
  - Photosensitivity reaction [Unknown]
  - Hepatitis C [Unknown]
  - Alanine aminotransferase increased [Unknown]
  - Headache [Unknown]
  - Pruritus [Unknown]
  - Myalgia [Unknown]
  - Insomnia [Unknown]
  - Aspartate aminotransferase increased [Unknown]
  - Product use issue [Unknown]
  - Dyspnoea [Unknown]
  - Fatigue [Unknown]
  - Rash [Unknown]
  - Off label use [Unknown]
  - Decreased appetite [Unknown]
  - Anaemia [Unknown]
